FAERS Safety Report 6475021-8 (Version None)
Quarter: 2009Q4

REPORT INFORMATION
  Report Type: 
  Country: None (occurrence: None)
  Receive Date: 20091204
  Receipt Date: 20090410
  Transmission Date: 20100525
  Serious: Yes (Hospitalization)
  Sender: FDA-Public Use
  Company Number: US-ELI_LILLY_AND_COMPANY-US200903000671

PATIENT
  Sex: Female

DRUGS (5)
  1. CYMBALTA [Suspect]
     Indication: ANXIETY
     Dosage: 30 MG, UNK
     Dates: start: 20070101
  2. CYMBALTA [Suspect]
     Dosage: 60 MG, UNK
     Dates: end: 20070301
  3. CYMBALTA [Suspect]
     Dosage: 60 MG, UNK
     Dates: start: 20070301, end: 20080501
  4. SYNTHROID [Concomitant]
  5. LYRICA [Concomitant]
     Indication: POST HERPETIC NEURALGIA

REACTIONS (7)
  - ABDOMINAL DISTENSION [None]
  - BIPOLAR DISORDER [None]
  - DIZZINESS [None]
  - HYPERHIDROSIS [None]
  - NERVOUSNESS [None]
  - NEURODERMATITIS [None]
  - WEIGHT INCREASED [None]
